FAERS Safety Report 6773921-2 (Version None)
Quarter: 2010Q2

REPORT INFORMATION
  Report Type: 
  Country: None (occurrence: None)
  Receive Date: 20100616
  Receipt Date: 20100616
  Transmission Date: 20101027
  Serious: Yes (Other)
  Sender: FDA-Public Use
  Company Number: None

PATIENT
  Sex: Female

DRUGS (2)
  1. TOPAMAX [Suspect]
     Indication: CONVULSION
     Dosage: 15 MG 1 AM 2 HS PO
     Route: 048
     Dates: start: 20080904
  2. KEPPRA [Suspect]
     Indication: CONVULSION
     Dosage: 250 MG 1 BID PO
     Route: 048
     Dates: start: 20080115

REACTIONS (1)
  - CONVULSION [None]
